FAERS Safety Report 13139431 (Version 1)
Quarter: 2017Q1

REPORT INFORMATION
  Report Type: Spontaneous
  Country: BR (occurrence: BR)
  Receive Date: 20170123
  Receipt Date: 20170123
  Transmission Date: 20170428
  Serious: Yes (Other)
  Sender: FDA-Public Use
  Company Number: BR-PFIZER INC-2017025761

PATIENT
  Age: 59 Year
  Sex: Female
  Weight: 61 kg

DRUGS (6)
  1. FRONTAL [Suspect]
     Active Substance: ALPRAZOLAM
     Indication: DEPRESSION
     Dosage: 1 MG, DAILY (ONE TABLET PER DAY)
     Route: 048
     Dates: start: 2015
  2. RIVOTRIL [Concomitant]
     Active Substance: CLONAZEPAM
     Indication: ANXIETY
     Dosage: 1 TABLET (UNSPECIFIED DOSE)
     Route: 060
  3. PONDERA [Concomitant]
     Active Substance: PAROXETINE HYDROCHLORIDE
     Indication: SELF ESTEEM DECREASED
     Dosage: 1 TABLET (UNSPECIFIED DOSE), DAILY
     Route: 048
     Dates: start: 2015
  4. NEBILET [Concomitant]
     Active Substance: NEBIVOLOL
     Dosage: 1 TABLET (UNSPECIFIED DOSE), 1X/DAY (AT BREAKFAST)
     Route: 048
  5. INDAPEN /00340101/ [Concomitant]
     Indication: CARDIOVASCULAR DISORDER
     Dosage: 1 TABLET (UNSPECIFIED DOSE), DAILY
     Route: 048
     Dates: start: 2009
  6. CARBOLITHIUM [Concomitant]
     Active Substance: LITHIUM CARBONATE
     Dosage: 1 TABLET (UNSPECIFIED DOSE), DAILY
     Route: 048
     Dates: start: 2015

REACTIONS (2)
  - Bipolar disorder [Unknown]
  - Memory impairment [Unknown]

NARRATIVE: CASE EVENT DATE: 2015
